FAERS Safety Report 6969597 (Version 2)
Quarter: 2012Q4

REPORT INFORMATION
  Report Type: Report from Study
  Country: US (occurrence: US)
  Receive Date: 20090415
  Receipt Date: 20121207
  Transmission Date: 20130627
  Serious: Yes (Hospitalization, Other)
  Sender: FDA-Public Use
  Company Number: US-ABBOTT-09P-163-0566932-00

PATIENT
  Age: 53 None
  Sex: Female

DRUGS (3)
  1. HUMIRA 40 MG/0.8 ML PEN [Suspect]
     Indication: CROHN^S DISEASE
     Dosage: loading dose followed by 40mg EOW
     Route: 058
     Dates: start: 20080501, end: 20110314
  2. HUMIRA 40 MG/0.8 ML PEN [Suspect]
     Route: 058
     Dates: start: 20090330, end: 20101222
  3. HUMIRA 40 MG/0.8 ML PEN [Suspect]
     Dates: start: 20101222

REACTIONS (24)
  - Myelitis transverse [Not Recovered/Not Resolved]
  - Small intestinal resection [Recovered/Resolved]
  - Injection site rash [Recovered/Resolved]
  - Injection site pruritus [Unknown]
  - Intervertebral disc protrusion [Unknown]
  - Periarthritis [Unknown]
  - Small intestinal stenosis [Unknown]
  - Pain in extremity [Unknown]
  - Pain [Unknown]
  - Hypoaesthesia [Not Recovered/Not Resolved]
  - Gait disturbance [Recovered/Resolved]
  - Muscular weakness [Recovered/Resolved]
  - Balance disorder [Not Recovered/Not Resolved]
  - Gait disturbance [Not Recovered/Not Resolved]
  - Peripheral coldness [Not Recovered/Not Resolved]
  - Activities of daily living impaired [Not Recovered/Not Resolved]
  - Pain [Not Recovered/Not Resolved]
  - Fatigue [Not Recovered/Not Resolved]
  - Temperature intolerance [Not Recovered/Not Resolved]
  - Gait disturbance [Not Recovered/Not Resolved]
  - Insomnia [Not Recovered/Not Resolved]
  - Fall [Not Recovered/Not Resolved]
  - Sensory disturbance [Not Recovered/Not Resolved]
  - Fear of falling [Not Recovered/Not Resolved]
